FAERS Safety Report 20725444 (Version 1)
Quarter: 2022Q2

REPORT INFORMATION
  Report Type: Spontaneous
  Country: TW (occurrence: TW)
  Receive Date: 20220419
  Receipt Date: 20220419
  Transmission Date: 20220721
  Serious: Yes (Hospitalization)
  Sender: FDA-Public Use
  Company Number: TW-ABBVIE-22K-153-4358995-00

PATIENT
  Age: 54 Year
  Sex: Male
  Weight: 68.6 kg

DRUGS (2)
  1. HUMIRA [Suspect]
     Active Substance: ADALIMUMAB
     Indication: Rheumatoid arthritis
     Route: 058
     Dates: start: 20210621, end: 20220223
  2. TRACETON [Concomitant]
     Indication: Pain management
     Dosage: BID + HS
     Route: 048
     Dates: start: 20220306, end: 20220314

REACTIONS (1)
  - Magnetic resonance imaging head abnormal [Recovered/Resolved]

NARRATIVE: CASE EVENT DATE: 20220302
